FAERS Safety Report 5334506-8 (Version None)
Quarter: 2007Q2

REPORT INFORMATION
  Report Type: 
  Country: None (occurrence: None)
  Receive Date: 20070308
  Receipt Date: 20061206
  Transmission Date: 20071010
  Serious: No
  Sender: FDA-Public Use
  Company Number: 2006-BP-13035BP

PATIENT
  Age: 76 Year
  Sex: Female

DRUGS (8)
  1. SPIRIVA [Suspect]
     Indication: CHRONIC OBSTRUCTIVE PULMONARY DISEASE
     Dosage: 18 MCG (18 MCG, 1 IN 1 D), IH
     Route: 055
     Dates: start: 20061104
  2. ALBUTEROL [Concomitant]
  3. NICOTINE [Concomitant]
  4. DIOVAN [Concomitant]
  5. TYLENOL [Concomitant]
  6. CALCIUM (CALCIUM) [Concomitant]
  7. VITAMIN D [Concomitant]
  8. PULMICORT [Concomitant]

REACTIONS (1)
  - DYSPNOEA [None]
